FAERS Safety Report 5860263-2 (Version None)
Quarter: 2008Q3

REPORT INFORMATION
  Report Type: 
  Country: None (occurrence: None)
  Receive Date: 20080827
  Receipt Date: 20070814
  Transmission Date: 20090109
  Serious: No
  Sender: FDA-Public Use
  Company Number: US-ABBOTT-07P-163-0378071-00

PATIENT
  Sex: Male
  Weight: 106.8 kg

DRUGS (5)
  1. NIASPAN [Suspect]
     Indication: BLOOD CHOLESTEROL
     Route: 048
     Dates: start: 20060501, end: 20070501
  2. NIASPAN [Suspect]
     Route: 048
     Dates: start: 20070501, end: 20070801
  3. NIASPAN [Suspect]
     Route: 048
     Dates: start: 20070801
  4. LISINOPRIL [Concomitant]
     Indication: HYPERTENSION
     Route: 048
  5. METFORMIN HCL [Concomitant]
     Indication: DIABETES MELLITUS
     Route: 048

REACTIONS (2)
  - FLUSHING [None]
  - PRURITUS [None]
